FAERS Safety Report 6530519-9 (Version None)
Quarter: 2010Q1

REPORT INFORMATION
  Report Type: 
  Country: None (occurrence: None)
  Receive Date: 20100107
  Receipt Date: 20091230
  Transmission Date: 20100710
  Serious: Yes (Hospitalization)
  Sender: FDA-Public Use
  Company Number: US-ELI_LILLY_AND_COMPANY-US200912006218

PATIENT
  Sex: Male
  Weight: 74.83 kg

DRUGS (6)
  1. BYETTA [Suspect]
     Indication: BLOOD GLUCOSE INCREASED
     Dosage: 5 UG, 2/D
     Route: 058
     Dates: start: 20060101, end: 20060101
  2. BYETTA [Suspect]
     Dosage: 10 UG, 2/D
     Route: 058
     Dates: start: 20060101
  3. LEVEMIR [Concomitant]
     Indication: BLOOD GLUCOSE INCREASED
     Dosage: 28 U, DAILY (1/D)
     Route: 058
     Dates: end: 20091001
  4. LEVEMIR [Concomitant]
     Dosage: 40 U, DAILY (1/D)
     Route: 058
     Dates: start: 20091001, end: 20090101
  5. LEVEMIR [Concomitant]
     Dosage: 28 U, DAILY (1/D)
     Route: 058
     Dates: start: 20090101
  6. PLAVIX [Concomitant]

REACTIONS (8)
  - ACCIDENT [None]
  - ANKLE FRACTURE [None]
  - BLOOD GLUCOSE INCREASED [None]
  - INFECTION [None]
  - INJECTION SITE HAEMATOMA [None]
  - INJECTION SITE HAEMORRHAGE [None]
  - LOCALISED INFECTION [None]
  - POOR PERIPHERAL CIRCULATION [None]
